FAERS Safety Report 5014699-2 (Version None)
Quarter: 2006Q2

REPORT INFORMATION
  Report Type: 
  Country: None (occurrence: None)
  Receive Date: 20060531
  Receipt Date: 20060526
  Transmission Date: 20061013
  Serious: Yes (Hospitalization)
  Sender: FDA-Public Use
  Company Number: FR-JNJFOC-20060505712

PATIENT
  Age: 56 Year
  Sex: Male

DRUGS (5)
  1. OFLOCET [Suspect]
     Indication: PROSTATITIS
     Route: 065
     Dates: start: 20060324, end: 20060410
  2. MOPRAL [Suspect]
     Indication: DRUG USE FOR UNKNOWN INDICATION
     Route: 042
     Dates: start: 20060404
  3. NEXIUM [Suspect]
     Indication: DRUG USE FOR UNKNOWN INDICATION
     Route: 048
     Dates: start: 20060406, end: 20060410
  4. OROCAL [Concomitant]
     Route: 048
     Dates: start: 20060404
  5. XATRAL [Concomitant]
     Route: 048
     Dates: start: 20060404

REACTIONS (7)
  - FAECES DISCOLOURED [None]
  - GENERAL PHYSICAL CONDITION [None]
  - NORMOCHROMIC NORMOCYTIC ANAEMIA [None]
  - OEDEMA [None]
  - PYREXIA [None]
  - RASH SCARLATINIFORM [None]
  - URINARY RETENTION [None]
